FAERS Safety Report 23245926 (Version 11)
Quarter: 2024Q2

REPORT INFORMATION
  Report Type: Report from Study
  Country: CL (occurrence: CL)
  Receive Date: 20231130
  Receipt Date: 20240609
  Transmission Date: 20240716
  Serious: Yes (Other)
  Sender: FDA-Public Use
  Company Number: CL-JNJFOC-20230766778

PATIENT
  Age: 65 Year
  Sex: Female

DRUGS (9)
  1. SIMPONI [Suspect]
     Active Substance: GOLIMUMAB
     Indication: Rheumatoid arthritis
     Dosage: THERAPY START DATE:07/JUL/2023
     Route: 058
  2. SIMPONI [Suspect]
     Active Substance: GOLIMUMAB
     Dosage: THERAPY START DATE: 07/AUG/2023
     Route: 058
  3. SIMPONI [Suspect]
     Active Substance: GOLIMUMAB
     Route: 058
  4. SIMPONI [Suspect]
     Active Substance: GOLIMUMAB
     Route: 058
  5. SIMPONI [Suspect]
     Active Substance: GOLIMUMAB
     Route: 058
  6. SIMPONI [Suspect]
     Active Substance: GOLIMUMAB
     Dosage: 07-JUL-2023
     Route: 058
  7. SIMPONI [Suspect]
     Active Substance: GOLIMUMAB
     Dosage: 07-JUL-2023
     Route: 058
  8. KETOPROFEN [Concomitant]
     Active Substance: KETOPROFEN
  9. TRAMADOL [Concomitant]
     Active Substance: TRAMADOL\TRAMADOL HYDROCHLORIDE
     Indication: Pain
     Dosage: 5 DROPS.

REACTIONS (29)
  - Cataract [Unknown]
  - Cerebrovascular accident [Unknown]
  - Rheumatoid arthritis [Not Recovered/Not Resolved]
  - Choking [Unknown]
  - Palpitations [Unknown]
  - Injection site pain [Recovered/Resolved]
  - Abdominal pain [Unknown]
  - Accident [Unknown]
  - Pain [Unknown]
  - Malaise [Not Recovered/Not Resolved]
  - Discouragement [Unknown]
  - Vision blurred [Unknown]
  - Vomiting [Unknown]
  - Alopecia [Unknown]
  - Ear infection [Unknown]
  - Drug ineffective [Unknown]
  - Post procedural infection [Unknown]
  - Tendonitis [Unknown]
  - Contusion [Unknown]
  - Feeling cold [Unknown]
  - Sciatica [Recovering/Resolving]
  - Hypertension [Unknown]
  - Ear pain [Unknown]
  - Panic attack [Unknown]
  - Ageusia [Unknown]
  - Tachycardia [Unknown]
  - Protein total abnormal [Unknown]
  - Hypovitaminosis [Unknown]
  - Bone disorder [Unknown]

NARRATIVE: CASE EVENT DATE: 20230101
